FAERS Safety Report 5779995-X (Version None)
Quarter: 2008Q2

REPORT INFORMATION
  Report Type: 
  Country: None (occurrence: None)
  Receive Date: 20080620
  Receipt Date: 20080615
  Transmission Date: 20081010
  Serious: Yes (Other)
  Sender: FDA-Public Use
  Company Number: US-JNJFOC-20080604154

PATIENT
  Sex: Female

DRUGS (2)
  1. MOTRIN [Suspect]
     Indication: DRUG USE FOR UNKNOWN INDICATION
  2. CHANTIX [Suspect]
     Indication: DRUG USE FOR UNKNOWN INDICATION

REACTIONS (5)
  - BLINDNESS [None]
  - CEREBROVASCULAR ACCIDENT [None]
  - COLOUR BLINDNESS [None]
  - GASTRIC HAEMORRHAGE [None]
  - STOMACH DISCOMFORT [None]
